FAERS Safety Report 16912442 (Version 1)
Quarter: 2019Q4

REPORT INFORMATION
  Report Type: Spontaneous
  Country: US (occurrence: US)
  Receive Date: 20191014
  Receipt Date: 20191014
  Transmission Date: 20200122
  Serious: No
  Sender: FDA-Public Use
  Company Number: US-BIOGEN-2019BI00794277

PATIENT
  Sex: Female

DRUGS (1)
  1. TECFIDERA [Suspect]
     Active Substance: DIMETHYL FUMARATE
     Indication: MULTIPLE SCLEROSIS
     Route: 065
     Dates: start: 20150627, end: 20160601

REACTIONS (5)
  - Feeding disorder [Unknown]
  - Weight decreased [Unknown]
  - Diarrhoea [Unknown]
  - Influenza [Unknown]
  - Multiple sclerosis relapse [Unknown]
